FAERS Safety Report 15876527 (Version 1)
Quarter: 2019Q1

REPORT INFORMATION
  Report Type: Report from Study
  Country: None (occurrence: MX)
  Receive Date: 20190127
  Receipt Date: 20190127
  Transmission Date: 20190417
  Serious: Yes (Hospitalization, Other)
  Sender: FDA-Public Use
  Company Number: MX-ABBVIE-19P-107-2635824-00

PATIENT
  Age: 1 Year
  Sex: Male
  Weight: 8 kg

DRUGS (6)
  1. FENABBOTT [Suspect]
     Active Substance: PHENOBARBITAL SODIUM
     Indication: CEREBROVASCULAR ACCIDENT
     Route: 048
     Dates: start: 201611
  2. NEXIUM [Concomitant]
     Active Substance: ESOMEPRAZOLE MAGNESIUM
     Indication: GASTROINTESTINAL DISORDER PROPHYLAXIS
     Route: 048
     Dates: start: 20180918
  3. EPIVAL [Suspect]
     Active Substance: DIVALPROEX SODIUM
     Indication: CEREBROVASCULAR ACCIDENT
     Dosage: INITIAL DOSE OF 1/2 CAPS; INCREASING (1/2 CAPS) EVERY 5 DAYS LATER REDUCED THE SAME WAY
     Route: 048
     Dates: start: 201801, end: 201810
  4. BIOGAIA [Concomitant]
     Active Substance: LACTOBACILLUS REUTERI
     Indication: GASTROINTESTINAL DISORDER PROPHYLAXIS
     Route: 048
     Dates: start: 20180918
  5. KEPPRA [Concomitant]
     Active Substance: LEVETIRACETAM
     Indication: CEREBROVASCULAR ACCIDENT
     Route: 048
     Dates: start: 201611
  6. MILK OF MAGNESIA [Concomitant]
     Active Substance: MAGNESIUM HYDROXIDE
     Indication: CONSTIPATION PROPHYLAXIS
     Dates: start: 201811

REACTIONS (6)
  - Off label use [Recovered/Resolved]
  - Influenza [Recovered/Resolved]
  - Hepatitis [Not Recovered/Not Resolved]
  - Pneumonia [Recovered/Resolved]
  - Product use in unapproved indication [Recovered/Resolved]
  - Wrong technique in product usage process [Recovered/Resolved]

NARRATIVE: CASE EVENT DATE: 201801
